FAERS Safety Report 12327723 (Version 1)
Quarter: 2016Q2

REPORT INFORMATION
  Report Type: Spontaneous
  Country: JP (occurrence: JP)
  Receive Date: 20160503
  Receipt Date: 20160503
  Transmission Date: 20160815
  Serious: Yes (Hospitalization, Other)
  Sender: FDA-Public Use
  Company Number: JP-PFIZER INC-2016238214

PATIENT
  Age: 50 Year
  Sex: Female

DRUGS (8)
  1. CRESTOR [Concomitant]
     Active Substance: ROSUVASTATIN CALCIUM
     Dosage: UNK
     Dates: end: 20150512
  2. SUINY [Concomitant]
     Active Substance: ANAGLIPTIN
     Indication: TYPE 2 DIABETES MELLITUS
     Dosage: UNK
     Dates: start: 20141110, end: 20150512
  3. BIO-THREE [Concomitant]
     Active Substance: HERBALS
     Dosage: UNK
     Dates: end: 20150512
  4. ALESION [Concomitant]
     Active Substance: EPINASTINE HYDROCHLORIDE
     Indication: RHINITIS ALLERGIC
     Dosage: UNK
     Dates: end: 20150512
  5. SEIBULE [Suspect]
     Active Substance: MIGLITOL
     Indication: TYPE 2 DIABETES MELLITUS
     Dosage: 150 MG, DAILY
     Route: 048
     Dates: end: 20150512
  6. NEXIUM [Concomitant]
     Active Substance: ESOMEPRAZOLE MAGNESIUM
     Dosage: UNK
     Dates: end: 20150512
  7. LASIX [Concomitant]
     Active Substance: FUROSEMIDE
     Dosage: UNK
     Dates: end: 20150512
  8. CEREKINON [Concomitant]
     Active Substance: TRIMEBUTINE
     Dosage: UNK
     Dates: end: 20150512

REACTIONS (1)
  - Sepsis [Unknown]

NARRATIVE: CASE EVENT DATE: 20150512
